FAERS Safety Report 25950589 (Version 2)
Quarter: 2025Q4

REPORT INFORMATION
  Report Type: Report from Study
  Country: JP (occurrence: JP)
  Receive Date: 20251023
  Receipt Date: 20251217
  Transmission Date: 20260118
  Serious: Yes (Death, Hospitalization)
  Sender: RECORDATI
  Company Number: JP-002147023-PHJP2018JP001589

PATIENT
  Age: 66 Year
  Sex: Female

DRUGS (8)
  1. PASIREOTIDE [Suspect]
     Active Substance: PASIREOTIDE
     Indication: Acromegaly
     Dosage: 40 MG, UNK
     Route: 030
     Dates: start: 20171218
  2. PASIREOTIDE [Suspect]
     Active Substance: PASIREOTIDE
     Dosage: 40 MG, UNK
     Route: 030
     Dates: start: 20180115
  3. PASIREOTIDE [Suspect]
     Active Substance: PASIREOTIDE
     Dosage: 40 MG, UNK
     Route: 030
     Dates: start: 20180214
  4. PASIREOTIDE [Suspect]
     Active Substance: PASIREOTIDE
     Dosage: 40 MG, UNK
     Route: 030
     Dates: start: 20180319
  5. PASIREOTIDE [Suspect]
     Active Substance: PASIREOTIDE
     Dosage: 40 MG, UNK
     Route: 030
     Dates: start: 20180416
  6. PASIREOTIDE [Suspect]
     Active Substance: PASIREOTIDE
     Dosage: 60 MG, UNK
     Route: 030
     Dates: start: 20180514
  7. HUMALOG [Concomitant]
     Active Substance: INSULIN LISPRO
     Indication: Diabetes mellitus
     Dosage: 42 IU, UNK
     Route: 065
  8. INSULIN GLARGINE [Concomitant]
     Active Substance: INSULIN GLARGINE
     Indication: Diabetes mellitus
     Dosage: 25 IU, UNK
     Route: 065

REACTIONS (4)
  - Tumour haemorrhage [Fatal]
  - Neoplasm progression [Fatal]
  - Tumour compression [Fatal]
  - Visual field defect [Unknown]

NARRATIVE: CASE EVENT DATE: 20180101
